FAERS Safety Report 12298998 (Version 1)
Quarter: 2016Q2

REPORT INFORMATION
  Report Type: Spontaneous
  Country: ZA (occurrence: ZA)
  Receive Date: 20160425
  Receipt Date: 20160425
  Transmission Date: 20160815
  Serious: Yes (Other)
  Sender: FDA-Public Use
  Company Number: ZA-ACCORD-039718

PATIENT
  Age: 37 Year
  Sex: Female
  Weight: 83 kg

DRUGS (1)
  1. PAXITAS [Suspect]
     Active Substance: PACLITAXEL
     Indication: BREAST CANCER
     Route: 042
     Dates: start: 20150401

REACTIONS (2)
  - Pain in extremity [Recovered/Resolved]
  - Product quality issue [Unknown]

NARRATIVE: CASE EVENT DATE: 20150401
